FAERS Safety Report 4850975-1 (Version None)
Quarter: 2005Q4

REPORT INFORMATION
  Report Type: 
  Country: None (occurrence: None)
  Receive Date: 20051130
  Receipt Date: 20051024
  Transmission Date: 20060501
  Serious: No
  Sender: FDA-Public Use
  Company Number: FABR-11289

PATIENT
  Age: 48 Year
  Sex: Male
  Weight: 74.8435 kg

DRUGS (1)
  1. FABRAZYME [Suspect]
     Indication: FABRY'S DISEASE
     Dates: start: 20031024, end: 20050801

REACTIONS (1)
  - PAIN IN EXTREMITY [None]
